FAERS Safety Report 18300381 (Version 1)
Quarter: 2020Q3

REPORT INFORMATION
  Report Type: Spontaneous
  Country: US (occurrence: US)
  Receive Date: 20200922
  Receipt Date: 20200922
  Transmission Date: 20201103
  Serious: Yes (Other)
  Sender: FDA-Public Use
  Company Number: None

PATIENT
  Age: 34 Year
  Sex: Female
  Weight: 88.74 kg

DRUGS (10)
  1. FIBER ADULT GUMMIES [Concomitant]
  2. HYDREA [Concomitant]
     Active Substance: HYDROXYUREA
  3. MULTIVITAMINS [Concomitant]
     Active Substance: VITAMINS
  4. TYLENOL EXTRA STRENGTH [Concomitant]
     Active Substance: ACETAMINOPHEN
  5. TASIGNA [Suspect]
     Active Substance: NILOTINIB
     Indication: CHRONIC MYELOID LEUKAEMIA
     Route: 048
     Dates: start: 20200810
  6. CYMBALTA [Concomitant]
     Active Substance: DULOXETINE HYDROCHLORIDE
  7. IBUPROFEN. [Concomitant]
     Active Substance: IBUPROFEN
  8. ADVIL [Concomitant]
     Active Substance: IBUPROFEN
  9. IRON [Concomitant]
     Active Substance: IRON
  10. DULOXETINE. [Concomitant]
     Active Substance: DULOXETINE

REACTIONS (3)
  - Tremor [None]
  - Glossodynia [None]
  - Hypoaesthesia oral [None]

NARRATIVE: CASE EVENT DATE: 20200922
